FAERS Safety Report 11244125 (Version 1)
Quarter: 2015Q3

REPORT INFORMATION
  Report Type: Spontaneous
  Country: US (occurrence: US)
  Receive Date: 20150707
  Receipt Date: 20150707
  Transmission Date: 20151125
  Serious: No
  Sender: FDA-Public Use
  Company Number: US-PFIZER INC-2015221103

PATIENT
  Age: 60 Year
  Sex: Male

DRUGS (18)
  1. NAPROXEN. [Concomitant]
     Active Substance: NAPROXEN
     Dosage: 500 MG TABS
  2. CYCLOBENZAPRINE HCL [Concomitant]
     Active Substance: CYCLOBENZAPRINE HYDROCHLORIDE
     Dosage: 10 MG, UNK
  3. NICODERM CQ [Concomitant]
     Active Substance: NICOTINE
     Dosage: 14 MG/24HR
     Route: 061
  4. CIALIS [Concomitant]
     Active Substance: TADALAFIL
     Dosage: 5 MG, UNK
  5. NORCO [Concomitant]
     Active Substance: ACETAMINOPHEN\HYDROCODONE BITARTRATE
     Dosage: HYDROCODONE BITARTRATE 7.5 MG/PARACETAMOL 325 MG
  6. XANAX [Concomitant]
     Active Substance: ALPRAZOLAM
     Dosage: 2 MG, UNK
  7. LISINOPRIL. [Concomitant]
     Active Substance: LISINOPRIL
     Dosage: 10 MG, UNK
  8. ALPRAZOLAM. [Concomitant]
     Active Substance: ALPRAZOLAM
     Dosage: 2 MG, UNK
  9. HYDROCODONE / ACETAMINOPHEN [Concomitant]
     Active Substance: ACETAMINOPHEN\HYDROCODONE
     Dosage: HYDROCODONE 7.5 MG/ACETAMINOPHEN 325 MG
  10. NEURONTIN [Concomitant]
     Active Substance: GABAPENTIN
     Dosage: 800 MG, UNK
  11. LISINOPRIL / HYDROCHLOROTHIAZIDE [Concomitant]
     Dosage: HYDROCHLOROTHIAZIDE 12.5 MG/LISINOPRIL 10 MG
  12. ADVAIR HFA [Concomitant]
     Active Substance: FLUTICASONE PROPIONATE\SALMETEROL XINAFOATE
     Dosage: FLUTICASONE PROPIONATE 250 MCG/SALMETEROL XINAFOATE 50 MCG AEPB 1 PUFF
  13. NEXIUM [Concomitant]
     Active Substance: ESOMEPRAZOLE MAGNESIUM
     Dosage: 40 MG CAPSULE DELAYED RELEASE (CPDR)
  14. IPRATROPIUM BROMIDE. [Concomitant]
     Active Substance: IPRATROPIUM BROMIDE
     Dosage: 0.02 %
  15. VIAGRA [Suspect]
     Active Substance: SILDENAFIL CITRATE
     Dosage: 100 MG, (TOOK 1 PILL 1-2 HOURS PRIOR TO SEXUAL ACTIVITY)
  16. LIPITOR [Concomitant]
     Active Substance: ATORVASTATIN CALCIUM
     Dosage: 40 MG, UNK
  17. WELLBUTRIN SR [Concomitant]
     Active Substance: BUPROPION HYDROCHLORIDE
     Dosage: 150 MG, 12 HOUR DOSING
  18. TESSALON [Concomitant]
     Active Substance: BENZONATATE
     Dosage: 100 MG, UNK

REACTIONS (2)
  - Back pain [Unknown]
  - Panic attack [Unknown]
